FAERS Safety Report 16361029 (Version 1)
Quarter: 2019Q3

REPORT INFORMATION
  Report Type: Spontaneous
  Country: US (occurrence: US)
  Receive Date: 20190524
  Receipt Date: 20190524
  Transmission Date: 20191004
  Serious: No
  Sender: FDA-Public Use
  Company Number: None

PATIENT
  Age: 52 Year
  Sex: Female
  Weight: 54.45 kg

DRUGS (5)
  1. EQUATE IBUPROFEN [Suspect]
     Active Substance: IBUPROFEN
     Indication: HEADACHE
     Dosage: ?          QUANTITY:40 CAPSULE(S);?
     Route: 048
     Dates: start: 20190518, end: 20190518
  2. CALCIUM W/VIT D3 GUMMY [Concomitant]
  3. EQUATE IBUPROFEN [Suspect]
     Active Substance: IBUPROFEN
     Indication: INFLAMMATION
     Dosage: ?          QUANTITY:40 CAPSULE(S);?
     Route: 048
     Dates: start: 20190518, end: 20190518
  4. MULTIVITAMIN GUMMY [Concomitant]
  5. B12 GUMMY [Concomitant]

REACTIONS (6)
  - Tremor [None]
  - Nausea [None]
  - Product dispensing error [None]
  - Gait disturbance [None]
  - Muscle twitching [None]
  - Headache [None]

NARRATIVE: CASE EVENT DATE: 20190518
